FAERS Safety Report 4902532-6 (Version None)
Quarter: 2006Q1

REPORT INFORMATION
  Report Type: 
  Country: None (occurrence: None)
  Receive Date: 20060202
  Receipt Date: 20060127
  Transmission Date: 20060701
  Serious: Yes (Other)
  Sender: FDA-Public Use
  Company Number: HQWYE541827JAN06

PATIENT
  Age: 26 Year
  Sex: Female

DRUGS (1)
  1. TRIQUILAR-21 (LEVONORGESTREL/ETHINYL ESTRADIOL, TABLET) [Suspect]
     Indication: ORAL CONTRACEPTION
     Dosage: 1 TALET 1X PER 1 DAY
     Route: 048
     Dates: start: 20010101, end: 20051122

REACTIONS (6)
  - ABORTION SPONTANEOUS [None]
  - DRUG EXPOSURE DURING PREGNANCY [None]
  - DRUG INEFFECTIVE [None]
  - POST ABORTION HAEMORRHAGE [None]
  - PREGNANCY ON ORAL CONTRACEPTIVE [None]
  - VOMITING [None]
